FAERS Safety Report 5503935-1 (Version None)
Quarter: 2007Q4

REPORT INFORMATION
  Report Type: 
  Country: None (occurrence: None)
  Receive Date: 20071030
  Receipt Date: 20071030
  Transmission Date: 20080405
  Serious: Yes (Other)
  Sender: FDA-Public Use
  Company Number: None

PATIENT
  Sex: Female
  Weight: 16.3295 kg

DRUGS (1)
  1. SINGULAIR [Suspect]
     Indication: SEASONAL ALLERGY
     Dosage: 5 MG QD PO
     Route: 048
     Dates: start: 20070801, end: 20071029

REACTIONS (13)
  - AGGRESSION [None]
  - ANGER [None]
  - CRYING [None]
  - EYELID OEDEMA [None]
  - IRRITABILITY [None]
  - MOOD SWINGS [None]
  - NAUSEA [None]
  - NIGHTMARE [None]
  - PERSONALITY CHANGE [None]
  - PHARYNGEAL OEDEMA [None]
  - PHARYNGOLARYNGEAL PAIN [None]
  - RASH [None]
  - STOMACH DISCOMFORT [None]
